FAERS Safety Report 5495255-9 (Version None)
Quarter: 2007Q4

REPORT INFORMATION
  Report Type: 
  Country: None (occurrence: None)
  Receive Date: 20071024
  Receipt Date: 20071012
  Transmission Date: 20080405
  Serious: Yes (Hospitalization)
  Sender: FDA-Public Use
  Company Number: US-GENENTECH-249324

PATIENT
  Age: 56 Year
  Sex: Female
  Weight: 59.864 kg

DRUGS (9)
  1. BEVACIZUMAB [Suspect]
     Indication: BREAST CANCER
     Dosage: 10 MG/KG, UNK
     Route: 042
     Dates: start: 20070823
  2. ADRIAMYCIN PFS [Suspect]
     Indication: BREAST CANCER
     Dosage: 60 MG/M2, UNK
     Route: 042
     Dates: start: 20070823
  3. CYTOXAN [Suspect]
     Indication: BREAST CANCER
  4. ADVIL LIQUI-GELS [Concomitant]
     Indication: DRUG USE FOR UNKNOWN INDICATION
     Dosage: 400 MG, UNK
  5. SYNTHROID [Concomitant]
     Indication: DRUG USE FOR UNKNOWN INDICATION
     Dosage: 75 A?G, QD
     Route: 048
  6. NEULASTA [Concomitant]
     Indication: DRUG USE FOR UNKNOWN INDICATION
  7. ACETAMINOPHEN [Concomitant]
     Indication: PYREXIA
     Dosage: 625 MG, PRN
     Route: 048
  8. ACETAMINOPHEN [Concomitant]
     Indication: PAIN
  9. LORAZEPAM [Concomitant]
     Indication: NAUSEA
     Dosage: 1 MG, PRN
     Route: 048

REACTIONS (3)
  - INFECTION [None]
  - NEUTROPENIA [None]
  - PYREXIA [None]
